FAERS Safety Report 18482392 (Version 1)
Quarter: 2020Q4

REPORT INFORMATION
  Report Type: Spontaneous
  Country: DE (occurrence: DE)
  Receive Date: 20201109
  Receipt Date: 20201109
  Transmission Date: 20210114
  Serious: Yes (Hospitalization)
  Sender: FDA-Public Use
  Company Number: DE-DSJP-DSE-2020-133027

PATIENT
  Age: 76 Year
  Sex: Male
  Weight: 70 kg

DRUGS (5)
  1. LIXIANA [Suspect]
     Active Substance: EDOXABAN TOSYLATE
     Indication: ATRIAL FIBRILLATION
     Dosage: 60 MG, QD
     Dates: start: 2014, end: 2020
  2. EUTHYROX [Concomitant]
     Active Substance: LEVOTHYROXINE SODIUM
     Indication: AUTOIMMUNE THYROIDITIS
     Dosage: 5 UG, QD
  3. BICALUTAMID [Concomitant]
     Active Substance: BICALUTAMIDE
     Indication: PROSTATE CANCER METASTATIC
     Dosage: 150 MG, QD
     Dates: start: 201907
  4. BISOPROLOL [Concomitant]
     Active Substance: BISOPROLOL
     Indication: PRODUCT USED FOR UNKNOWN INDICATION
     Dosage: 5 MG, QD
     Dates: start: 2014
  5. CANDESARTAN. [Concomitant]
     Active Substance: CANDESARTAN
     Indication: HYPERTENSION
     Dosage: 32 MG MILLGRAM(S) EVERY DAY 2 SEPARATED DOSES
     Dates: start: 2014

REACTIONS (3)
  - Subdural haematoma [Unknown]
  - Hemiparesis [Unknown]
  - Vitreous haemorrhage [Unknown]

NARRATIVE: CASE EVENT DATE: 20200524
